FAERS Safety Report 8036108-1 (Version None)
Quarter: 2012Q1

REPORT INFORMATION
  Report Type: 
  Country: None (occurrence: None)
  Receive Date: 20120111
  Receipt Date: 20120102
  Transmission Date: 20120608
  Serious: Yes (Death)
  Sender: FDA-Public Use
  Company Number: US-BAYER-2012-000983

PATIENT
  Age: 17 Year
  Sex: Female

DRUGS (18)
  1. LAXATIVES [Suspect]
  2. ACETAMINOPHEN AND HYDROCODONE BITARTRATE [Suspect]
  3. CITALOPRAM [Suspect]
  4. METHYLPHENIDATE [Suspect]
  5. ROSUVASTATIN [Suspect]
  6. MONTELUKAST [Suspect]
  7. DEXTROMETHORPHAN (ROMILAR, XINLI) +/- GUAIFENESIN [Suspect]
  8. HALOPERIDOL [Suspect]
  9. PARACETAMOL + PSEUDOEPHEDRINE [Suspect]
  10. ETHANOL [Suspect]
  11. FLUOXETINE [Suspect]
  12. PHENOL [Suspect]
  13. HYOSCYAMINE [Suspect]
  14. IBUPROFEN [Suspect]
  15. MAGNESIUM CHLORIDE [Suspect]
  16. GUAIFENESIN [Suspect]
  17. LOPERAMIDE [Suspect]
  18. NAPROXEN SODIUM [Suspect]

REACTIONS (1)
  - TOXICITY TO VARIOUS AGENTS [None]
